FAERS Safety Report 5214891-8 (Version None)
Quarter: 2007Q1

REPORT INFORMATION
  Report Type: 
  Country: None (occurrence: None)
  Receive Date: 20061108
  Receipt Date: 20050919
  Transmission Date: 20070707
  Serious: Yes (Other)
  Sender: FDA-Public Use
  Company Number: PHEH2005US10372

PATIENT
  Age: 64 Year
  Sex: Female

DRUGS (4)
  1. ESTRADERM [Suspect]
     Indication: MENOPAUSAL SYMPTOMS
     Dosage: TRANSDERMAL
     Route: 062
     Dates: start: 19810101
  2. OGEN [Suspect]
     Indication: MENOPAUSAL SYMPTOMS
     Dates: start: 19810101, end: 19990101
  3. PROVERA [Suspect]
     Indication: MENOPAUSAL SYMPTOMS
     Dates: start: 19810101, end: 19990101
  4. PREMPRO [Suspect]
     Indication: MENOPAUSAL SYMPTOMS
     Dates: start: 19810101, end: 19990101

REACTIONS (7)
  - ANXIETY [None]
  - BIOPSY [None]
  - BREAST CANCER [None]
  - INJURY [None]
  - MALIGNANT BREAST LUMP REMOVAL [None]
  - PAIN [None]
  - SCAR [None]
